FAERS Safety Report 10362067 (Version 1)
Quarter: 2014Q1

REPORT INFORMATION
  Report Type: Spontaneous
  Country: US (occurrence: None)
  Receive Date: 20140306
  Receipt Date: 20140306
  Transmission Date: 20141002
  Serious: Yes (Other)
  Sender: FDA-Public Use
  Company Number: 163-21880-13074810

PATIENT
  Age: 64 Year
  Sex: Female
  Weight: 77 kg

DRUGS (6)
  1. REVLIMID (LENALIDOMIDE) (25 MILLIGRAM, CAPSULES) [Suspect]
     Indication: PLASMA CELL MYELOMA
     Route: 048
     Dates: start: 200904
  2. IBUPROFEN (IBUPROFEN) (TABLETS) [Concomitant]
  3. ESTRACE [Concomitant]
  4. MULTIVITAMINS (MULTIVITAMINS) [Concomitant]
  5. CALCIUM CITRATE + D (CALCIUM CITRATE W/COLECALCIFEROL) [Concomitant]
  6. EXALOG (HYDROMORPHONE HYDROCHLORIDE) [Concomitant]

REACTIONS (3)
  - Pulmonary thrombosis [None]
  - Weight increased [None]
  - Pruritus [None]
